FAERS Safety Report 24540521 (Version 2)
Quarter: 2025Q3

REPORT INFORMATION
  Report Type: Spontaneous
  Country: JP (occurrence: JP)
  Receive Date: 20241023
  Receipt Date: 20250802
  Transmission Date: 20251021
  Serious: Yes (Other)
  Sender: ALEXION PHARMACEUTICALS
  Company Number: JP-ASTRAZENECA-240108536_010810_P_1

PATIENT

DRUGS (1)
  1. GEFITINIB [Suspect]
     Active Substance: GEFITINIB
     Indication: Lung neoplasm malignant
     Dosage: 250 MILLIGRAM, QD

REACTIONS (6)
  - Anaemia [Unknown]
  - Fall [Unknown]
  - Feeding disorder [Unknown]
  - Gastric ulcer [Unknown]
  - Loss of consciousness [Unknown]
  - Dysphagia [Unknown]
